FAERS Safety Report 23345535 (Version 1)
Quarter: 2023Q4

REPORT INFORMATION
  Report Type: Spontaneous
  Country: CN (occurrence: CN)
  Receive Date: 20231228
  Receipt Date: 20231228
  Transmission Date: 20240110
  Serious: Yes (Hospitalization)
  Sender: FDA-Public Use
  Company Number: CN-Merck Healthcare KGaA-2023496304

PATIENT
  Age: 29 Year
  Sex: Female

DRUGS (1)
  1. LUVERIS [Suspect]
     Active Substance: LUTROPIN ALFA
     Indication: Infertility female
     Route: 058
     Dates: start: 20231011, end: 20231011

REACTIONS (1)
  - Ovarian hyperstimulation syndrome [Recovering/Resolving]

NARRATIVE: CASE EVENT DATE: 20231016
